FAERS Safety Report 8773467 (Version 2)
Quarter: 2012Q4

REPORT INFORMATION
  Report Type: 
  Country: US (occurrence: US)
  Receive Date: 20120907
  Receipt Date: 20120927
  Transmission Date: 20130627
  Serious: Yes (Other)
  Sender: FDA-Public Use
  Company Number: US-PFIZER INC-2012219587

PATIENT
  Age: 31 Year
  Sex: Male
  Weight: 81.63 kg

DRUGS (5)
  1. NEURONTIN [Suspect]
     Indication: ANXIETY
     Dosage: 800 mg, 4x/day
     Route: 048
     Dates: end: 20120824
  2. NEURONTIN [Suspect]
     Indication: DEPRESSION
  3. NEURONTIN [Suspect]
     Indication: BACK PAIN
  4. CELEBREX [Suspect]
     Indication: DEPRESSION
     Dosage: 200 mg, 2x/day
     Route: 048
     Dates: end: 20120824
  5. ULTRAM [Concomitant]
     Dosage: UNK

REACTIONS (3)
  - Major depression [Recovering/Resolving]
  - Depressed mood [Recovering/Resolving]
  - Off label use [Unknown]
